FAERS Safety Report 7273732-8 (Version None)
Quarter: 2011Q1

REPORT INFORMATION
  Report Type: 
  Country: None (occurrence: None)
  Receive Date: 20110203
  Receipt Date: 20110125
  Transmission Date: 20110831
  Serious: Yes (Death, Life-Threatening)
  Sender: FDA-Public Use
  Company Number: JP-CELGENEUS-087-21880-10102192

PATIENT
  Sex: Male
  Weight: 58 kg

DRUGS (21)
  1. REVLIMID [Suspect]
     Indication: MULTIPLE MYELOMA
     Route: 048
     Dates: start: 20100830, end: 20100919
  2. REVLIMID [Suspect]
     Route: 048
     Dates: start: 20101130, end: 20101213
  3. ULCERLMIN [Concomitant]
     Indication: PROPHYLAXIS
     Route: 048
     Dates: start: 20100830, end: 20110112
  4. REVLIMID [Suspect]
     Route: 048
     Dates: start: 20101102, end: 20101115
  5. LENADEX [Suspect]
     Route: 048
     Dates: start: 20101001, end: 20101022
  6. LENADEX [Suspect]
     Route: 048
     Dates: start: 20101102, end: 20101115
  7. LENADEX [Suspect]
     Route: 048
     Dates: start: 20110111, end: 20110112
  8. AZULENE GLUTAMINE [Concomitant]
     Indication: PROPHYLAXIS
     Route: 048
     Dates: start: 20100830, end: 20110112
  9. LENADEX [Suspect]
     Route: 048
     Dates: start: 20101130, end: 20101213
  10. REVLIMID [Suspect]
     Route: 048
     Dates: start: 20110111, end: 20110112
  11. LENADEX [Suspect]
     Indication: MULTIPLE MYELOMA
     Route: 048
     Dates: start: 20100830, end: 20100902
  12. TAKEPRON [Concomitant]
     Indication: PROPHYLAXIS
     Route: 048
     Dates: start: 20100830, end: 20110112
  13. LIPITOR [Concomitant]
     Route: 048
     Dates: start: 20100202
  14. BAKTAR [Concomitant]
     Indication: PROPHYLAXIS
     Route: 048
     Dates: start: 20101014, end: 20110112
  15. LENADEX [Suspect]
     Route: 048
     Dates: start: 20100915, end: 20100918
  16. BLOPRESS [Concomitant]
     Indication: HYPERTENSION
     Route: 048
     Dates: start: 20100202
  17. ASPIRIN [Concomitant]
     Indication: CEREBRAL INFARCTION
     Route: 048
     Dates: start: 20100202, end: 20110112
  18. LENADEX [Suspect]
     Route: 048
     Dates: start: 20100907, end: 20100910
  19. ASTRIC [Concomitant]
     Indication: PROPHYLAXIS
     Route: 048
     Dates: start: 20100830, end: 20110112
  20. REVLIMID [Suspect]
     Route: 048
     Dates: start: 20100930, end: 20101020
  21. VITAMEDIN [Concomitant]
     Route: 048
     Dates: start: 20100830, end: 20110112

REACTIONS (4)
  - CARDIAC FAILURE [None]
  - PLATELET COUNT DECREASED [None]
  - NEUTROPHIL COUNT DECREASED [None]
  - SICK SINUS SYNDROME [None]
